FAERS Safety Report 8416729-4 (Version None)
Quarter: 2012Q2

REPORT INFORMATION
  Report Type: 
  Country: None (occurrence: None)
  Receive Date: 20120606
  Receipt Date: 20120531
  Transmission Date: 20120825
  Serious: Yes (Other)
  Sender: FDA-Public Use
  Company Number: US-PFIZER INC-2012131932

PATIENT
  Sex: Male

DRUGS (1)
  1. VIAGRA [Suspect]
     Dosage: 600 MG, UNK

REACTIONS (4)
  - INCORRECT DOSE ADMINISTERED [None]
  - MENTAL DISORDER [None]
  - PENIS DISORDER [None]
  - SKIN DISCOLOURATION [None]
